FAERS Safety Report 6035644-7 (Version None)
Quarter: 2009Q1

REPORT INFORMATION
  Report Type: 
  Country: None (occurrence: None)
  Receive Date: 20090113
  Receipt Date: 20090107
  Transmission Date: 20090719
  Serious: Yes (Other)
  Sender: FDA-Public Use
  Company Number: PHEH2004US03590

PATIENT

DRUGS (9)
  1. ZOMETA [Suspect]
     Indication: MULTIPLE MYELOMA
     Dosage: 4 MG EVERY MONTH
     Route: 042
     Dates: start: 20021101, end: 20040301
  2. DECADRON [Concomitant]
     Indication: MULTIPLE MYELOMA
     Dates: start: 20020101, end: 20040301
  3. VINCRISTINE [Concomitant]
     Indication: MULTIPLE MYELOMA
     Dates: start: 20010101, end: 20040301
  4. ADRIAMYCIN PFS [Concomitant]
     Indication: MULTIPLE MYELOMA
     Dates: start: 20010101, end: 20040301
  5. DAUNORUBICIN HCL [Concomitant]
     Indication: MULTIPLE MYELOMA
     Dates: start: 20010101, end: 20040301
  6. THALIDOMIDE [Concomitant]
     Indication: MULTIPLE MYELOMA
     Dates: start: 20010101, end: 20040301
  7. ZOCOR [Concomitant]
  8. HYDROCHLOROTHIAZIDE [Concomitant]
  9. PRINIVIL [Concomitant]

REACTIONS (9)
  - ABSCESS DRAINAGE [None]
  - BONE DISORDER [None]
  - GINGIVITIS [None]
  - IMPAIRED HEALING [None]
  - OSTEONECROSIS [None]
  - PAIN [None]
  - SEQUESTRECTOMY [None]
  - SWELLING [None]
  - TOOTH EXTRACTION [None]
